FAERS Safety Report 4911346-2 (Version None)
Quarter: 2006Q1

REPORT INFORMATION
  Report Type: 
  Country: None (occurrence: None)
  Receive Date: 20060206
  Receipt Date: 20060120
  Transmission Date: 20060701
  Serious: Yes (Other)
  Sender: FDA-Public Use
  Company Number: 200410545BBE

PATIENT
  Age: 26 Year
  Sex: Female

DRUGS (21)
  1. HYPRHO-D [Suspect]
     Indication: PREGNANCY
     Dosage: UNK, NI
     Route: 065
     Dates: start: 19950303
  2. HYPRHO-D [Suspect]
     Dates: start: 19941216
  3. THIMEROSAL ^METHIOLATE^ (ELI LILLY) (THIMEROSAL) [Suspect]
     Dosage: NI
  4. ORTHO-NOVUM [Concomitant]
  5. MONOPHASIL DESOGEN [Concomitant]
  6. METROGEL [Concomitant]
  7. CILEST [Concomitant]
  8. EXCEDRIN [Concomitant]
  9. ALPRAZOLAM [Concomitant]
  10. CELEXA [Concomitant]
  11. PHENERGAN [Concomitant]
  12. SCOPOLAMINE PATCH [Concomitant]
  13. MACROBID [Concomitant]
  14. TIGAN [Concomitant]
  15. TEMAZEPAM [Concomitant]
  16. NORTRIPTYLINE HCL [Concomitant]
  17. CELEBREX [Concomitant]
  18. TYLENOL SINUS [Concomitant]
  19. ZOLOFT [Concomitant]
  20. XANAX [Concomitant]
  21. VITAMIN B COMPLEX CAP [Concomitant]

REACTIONS (12)
  - ABDOMINAL DISCOMFORT [None]
  - ADVERSE EVENT [None]
  - ANXIETY [None]
  - CONDITION AGGRAVATED [None]
  - DEPRESSION [None]
  - DIARRHOEA [None]
  - DRUG EXPOSURE DURING PREGNANCY [None]
  - HEADACHE [None]
  - HYPERHIDROSIS [None]
  - INSOMNIA [None]
  - STRESS [None]
  - VAGINITIS BACTERIAL [None]
